FAERS Safety Report 16473039 (Version 2)
Quarter: 2019Q3

REPORT INFORMATION
  Report Type: Report from Study
  Country: CO (occurrence: CO)
  Receive Date: 20190625
  Receipt Date: 20190715
  Transmission Date: 20191004
  Serious: Yes (Hospitalization)
  Sender: FDA-Public Use
  Company Number: CO-ASTELLAS-2019US025980

PATIENT
  Age: 14 Year
  Sex: Female
  Weight: 32 kg

DRUGS (2)
  1. TACROLIMUS. [Suspect]
     Active Substance: TACROLIMUS
     Indication: RENAL TRANSPLANT
     Dosage: 1 MG (2 CAPSULES OF 1MG), EVERY 12 HOURS
     Route: 048
     Dates: start: 20160928
  2. MYCOPHENOLATE [Concomitant]
     Active Substance: MYCOPHENOLIC ACID
     Indication: RENAL TRANSPLANT
     Route: 048
     Dates: start: 20160928

REACTIONS (4)
  - Pharyngitis [Recovered/Resolved]
  - Immunosuppressant drug level decreased [Recovered/Resolved]
  - Odynophagia [Recovered/Resolved]
  - Ear infection [Recovered/Resolved]

NARRATIVE: CASE EVENT DATE: 20190607
